FAERS Safety Report 18031186 (Version 1)
Quarter: 2020Q3

REPORT INFORMATION
  Report Type: Report from Study
  Country: None (occurrence: IT)
  Receive Date: 20200715
  Receipt Date: 20200715
  Transmission Date: 20201103
  Serious: Yes (Other)
  Sender: FDA-Public Use
  Company Number: IT-ABBVIE-19K-083-3198623-00

PATIENT
  Age: 75 Year
  Sex: Female

DRUGS (1)
  1. DUODOPA [Suspect]
     Active Substance: CARBIDOPA\LEVODOPA
     Indication: PARKINSON^S DISEASE
     Dosage: MD: 2,7 PLUS 3?CR: 1,2 (13 HOURS)?ED: 1,7
     Route: 050
     Dates: start: 20171017

REACTIONS (3)
  - Skin lesion [Recovered/Resolved]
  - Stoma site discharge [Recovered/Resolved]
  - Stoma site inflammation [Unknown]

NARRATIVE: CASE EVENT DATE: 201912
